FAERS Safety Report 23533752 (Version 4)
Quarter: 2025Q1

REPORT INFORMATION
  Report Type: Spontaneous
  Country: US (occurrence: US)
  Receive Date: 20240216
  Receipt Date: 20250306
  Transmission Date: 20250408
  Serious: Yes (Other)
  Sender: PFIZER
  Company Number: US-PFIZER INC-PV202300152533

PATIENT
  Age: 74 Year
  Sex: Female
  Weight: 75.3 kg

DRUGS (20)
  1. IBRANCE [Suspect]
     Active Substance: PALBOCICLIB
     Indication: Breast cancer metastatic
     Dates: start: 2023
  2. IBRANCE [Suspect]
     Active Substance: PALBOCICLIB
     Dosage: 100 MG, 1X/DAY
     Route: 048
  3. IBRANCE [Suspect]
     Active Substance: PALBOCICLIB
     Dosage: 75 MG, 1X/DAY
     Route: 048
  4. IBRANCE [Suspect]
     Active Substance: PALBOCICLIB
  5. IBRANCE [Suspect]
     Active Substance: PALBOCICLIB
     Route: 048
  6. IBRANCE [Suspect]
     Active Substance: PALBOCICLIB
  7. IBRANCE [Suspect]
     Active Substance: PALBOCICLIB
  8. POTASSIUM [Concomitant]
     Active Substance: POTASSIUM
  9. FISH OIL [Concomitant]
     Active Substance: FISH OIL
  10. CALCIUM [Concomitant]
     Active Substance: CALCIUM
  11. ONDANSETRON [Concomitant]
     Active Substance: ONDANSETRON
  12. SIMVASTATIN [Concomitant]
     Active Substance: SIMVASTATIN
  13. METOPROLOL [Concomitant]
     Active Substance: METOPROLOL
  14. OMEPRAZOLE [Concomitant]
     Active Substance: OMEPRAZOLE
  15. ZYRTEC [Concomitant]
     Active Substance: CETIRIZINE HYDROCHLORIDE
  16. MAXZIDE [Concomitant]
     Active Substance: HYDROCHLOROTHIAZIDE\TRIAMTERENE
  17. COBAMAMIDE [Concomitant]
     Active Substance: COBAMAMIDE
  18. VITAMIN C [Concomitant]
     Active Substance: ASCORBIC ACID
  19. MIRALAX [Concomitant]
     Active Substance: POLYETHYLENE GLYCOL 3350
  20. FASLODEX [Concomitant]
     Active Substance: FULVESTRANT
     Indication: Antioestrogen therapy
     Dosage: 25, ONE INJECTION IN EACH HIP ONCE A MONTH
     Dates: start: 2023

REACTIONS (6)
  - Cerebrovascular accident [Unknown]
  - White blood cell count decreased [Recovered/Resolved]
  - Bronchitis [Recovering/Resolving]
  - Cough [Recovering/Resolving]
  - Off label use [Unknown]
  - Platelet count decreased [Unknown]

NARRATIVE: CASE EVENT DATE: 20241201
